FAERS Safety Report 22662425 (Version 2)
Quarter: 2023Q4

REPORT INFORMATION
  Report Type: Spontaneous
  Country: RU (occurrence: RU)
  Receive Date: 20230701
  Receipt Date: 20231003
  Transmission Date: 20240110
  Serious: Yes (Life-Threatening)
  Sender: FDA-Public Use
  Company Number: RU-JNJFOC-20230664276

PATIENT
  Sex: Female
  Weight: 55.5 kg

DRUGS (10)
  1. SIRTURO [Suspect]
     Active Substance: BEDAQUILINE FUMARATE
     Indication: Tuberculosis
     Dosage: 0.2 UNSPECIFIED UNITS
     Route: 048
     Dates: start: 20221208, end: 20230620
  2. SIRTURO [Suspect]
     Active Substance: BEDAQUILINE FUMARATE
     Dosage: 0.2 UNSPECIFIED UNITS
     Route: 048
     Dates: start: 20230707, end: 20230921
  3. LEVOFLOXACIN [Suspect]
     Active Substance: LEVOFLOXACIN
     Indication: Tuberculosis
     Dosage: 1.0 UNSPECIFIED UNITS
     Route: 065
     Dates: start: 20221208, end: 20230620
  4. LEVOFLOXACIN [Suspect]
     Active Substance: LEVOFLOXACIN
     Dosage: 1.0 UNSPECIFIED UNITS
     Route: 065
     Dates: start: 20230707, end: 20230921
  5. LINEZOLID [Suspect]
     Active Substance: LINEZOLID
     Indication: Tuberculosis
     Dosage: 0.6 UNSPECIFIED UNITS
     Route: 065
     Dates: start: 20221208, end: 20230620
  6. LINEZOLID [Suspect]
     Active Substance: LINEZOLID
     Dosage: 0.3 UNSPECIFIED UNITS
     Route: 065
     Dates: start: 20230708, end: 20230921
  7. CLOFAZIMINE [Suspect]
     Active Substance: CLOFAZIMINE
     Indication: Tuberculosis
     Dosage: 0.1 UNSPECIFIED UNITS
     Route: 065
     Dates: start: 20221208, end: 20230620
  8. CLOFAZIMINE [Suspect]
     Active Substance: CLOFAZIMINE
     Dosage: 0.1 UNSPECIFIED UNITS
     Route: 065
     Dates: start: 20230707, end: 20230921
  9. BENFOTIAMINE\PYRIDOXINE [Concomitant]
     Active Substance: BENFOTIAMINE\PYRIDOXINE
     Indication: Prophylaxis
     Route: 048
     Dates: start: 20221201, end: 20230921
  10. OMEPRAZOLE [Concomitant]
     Active Substance: OMEPRAZOLE
     Indication: Nausea
     Route: 048
     Dates: start: 20221208, end: 20230921

REACTIONS (1)
  - Anaemia [Recovered/Resolved]

NARRATIVE: CASE EVENT DATE: 20230505
